FAERS Safety Report 5819439-2 (Version None)
Quarter: 2008Q3

REPORT INFORMATION
  Report Type: 
  Country: None (occurrence: None)
  Receive Date: 20080718
  Receipt Date: 20080708
  Transmission Date: 20090109
  Serious: Yes (Hospitalization)
  Sender: FDA-Public Use
  Company Number: 002146

PATIENT
  Age: 54 Year
  Sex: Female

DRUGS (5)
  1. BUSULFEX [Suspect]
     Indication: STEM CELL TRANSPLANT
     Dosage: 156 ML, INTRAVENOUS
     Route: 042
     Dates: start: 20071011, end: 20071012
  2. FLUDARABINE PHOSPHATE [Concomitant]
  3. VALPROATE SODIUM [Concomitant]
  4. FILGRASTIM        (FILGRASTIM) [Concomitant]
  5. CYCLOSPORINE [Concomitant]

REACTIONS (4)
  - BONE MARROW TRANSPLANT [None]
  - CYTOMEGALOVIRUS ENTEROCOLITIS [None]
  - GRAFT VERSUS HOST DISEASE [None]
  - STOMATITIS [None]
